FAERS Safety Report 9253032 (Version 1)
Quarter: 2013Q2

REPORT INFORMATION
  Report Type: Spontaneous
  Country: US (occurrence: US)
  Receive Date: 20130424
  Receipt Date: 20130424
  Transmission Date: 20140414
  Serious: Yes (Death)
  Sender: FDA-Public Use
  Company Number: US-ELI_LILLY_AND_COMPANY-US201304005775

PATIENT
  Sex: Female

DRUGS (1)
  1. HUMALOG 25% LISPRO, 75% NPL [Suspect]
     Dosage: UNK, UNKNOWN

REACTIONS (1)
  - Road traffic accident [Fatal]
